FAERS Safety Report 11331684 (Version 2)
Quarter: 2015Q3

REPORT INFORMATION
  Report Type: Spontaneous
  Country: US (occurrence: US)
  Receive Date: 20150803
  Receipt Date: 20150804
  Transmission Date: 20151125
  Serious: No
  Sender: FDA-Public Use
  Company Number: US-PFIZER INC-2015258156

PATIENT
  Age: 67 Year
  Sex: Female
  Weight: 66 kg

DRUGS (2)
  1. LYRICA [Suspect]
     Active Substance: PREGABALIN
     Indication: PAIN
     Dosage: 50 MG, 2X/DAY ONE IN THE MORNING ONE AT NIGHT
     Dates: start: 201507
  2. LYRICA [Suspect]
     Active Substance: PREGABALIN
     Dosage: 50 MG, ONE DAY AND THEN ON ANOTHER DAY
     Dates: end: 20150729

REACTIONS (2)
  - Drug ineffective [Not Recovered/Not Resolved]
  - Back pain [Not Recovered/Not Resolved]

NARRATIVE: CASE EVENT DATE: 201507
